FAERS Safety Report 8351944-X (Version None)
Quarter: 2012Q2

REPORT INFORMATION
  Report Type: 
  Country: None (occurrence: None)
  Receive Date: 20120511
  Receipt Date: 20120430
  Transmission Date: 20120825
  Serious: Yes (Hospitalization)
  Sender: FDA-Public Use
  Company Number: IL-ELI_LILLY_AND_COMPANY-IL201205000661

PATIENT
  Sex: Female
  Weight: 61 kg

DRUGS (3)
  1. VITAMINS NOS [Concomitant]
  2. FORTEO [Suspect]
     Indication: OSTEOPOROSIS
     Dosage: 20 UG, QD
     Route: 058
     Dates: start: 20110120
  3. PRILOSEC [Concomitant]

REACTIONS (2)
  - AORTIC VALVE REPLACEMENT [None]
  - HIP ARTHROPLASTY [None]
